FAERS Safety Report 5989743-6 (Version None)
Quarter: 2008Q4

REPORT INFORMATION
  Report Type: 
  Country: None (occurrence: None)
  Receive Date: 20081209
  Receipt Date: 20081129
  Transmission Date: 20090506
  Serious: Yes (Death)
  Sender: FDA-Public Use
  Company Number: ADE2008-0400

PATIENT
  Sex: Male

DRUGS (2)
  1. CITALOPRAM [Suspect]
  2. ZOPICLONE [Suspect]
     Dosage: PO
     Route: 048

REACTIONS (4)
  - ASPHYXIA [None]
  - COMPLETED SUICIDE [None]
  - DRUG LEVEL INCREASED [None]
  - INTENTIONAL DRUG MISUSE [None]
